FAERS Safety Report 13776214 (Version 1)
Quarter: 2017Q3

REPORT INFORMATION
  Report Type: Spontaneous
  Country: US (occurrence: US)
  Receive Date: 20170720
  Receipt Date: 20170720
  Transmission Date: 20171127
  Serious: No
  Sender: FDA-Public Use
  Company Number: US-EPIC PHARMA LLC-2017EPC00054

PATIENT
  Sex: Male
  Weight: 82.99 kg

DRUGS (3)
  1. UNSPECIFIED ANTIDEPRESSANT [Concomitant]
  2. OXYCODONE HYDROCHLORIDE. [Suspect]
     Active Substance: OXYCODONE HYDROCHLORIDE
     Indication: PAIN
     Dosage: 5 MG TO 10 MG, UP TO 6X/DAY
     Route: 048
     Dates: start: 2017, end: 201704
  3. UNSPECIFIED OPIOD PATCH [Concomitant]

REACTIONS (4)
  - Chills [Recovered/Resolved]
  - Hypersomnia [Recovered/Resolved]
  - Hypersensitivity [Recovered/Resolved]
  - Hyperhidrosis [Recovered/Resolved]

NARRATIVE: CASE EVENT DATE: 2017
